FAERS Safety Report 5522346-6 (Version None)
Quarter: 2007Q4

REPORT INFORMATION
  Report Type: 
  Country: None (occurrence: None)
  Receive Date: 20071120
  Receipt Date: 20071113
  Transmission Date: 20080405
  Serious: Yes (Life-Threatening, Hospitalization)
  Sender: FDA-Public Use
  Company Number: FR-ELI_LILLY_AND_COMPANY-FR200611001311

PATIENT
  Age: 76 Year
  Sex: Male
  Weight: 75 kg

DRUGS (9)
  1. ALIMTA [Suspect]
     Indication: NON-SMALL CELL LUNG CANCER
     Dosage: 500 MG/M2, OTHER
     Route: 042
     Dates: start: 20061026, end: 20061116
  2. FOLIC ACID [Concomitant]
     Indication: VITAMIN SUPPLEMENTATION
     Dosage: UNK, UNKNOWN
     Route: 065
  3. VITAMIN B-12 [Concomitant]
     Indication: VITAMIN SUPPLEMENTATION
     Dosage: UNK, UNKNOWN
     Route: 065
  4. CORTANCYL                               /FRA/ [Concomitant]
     Indication: PROPHYLAXIS
     Dosage: 4 MG, 2/D
     Route: 065
  5. ZOPHREN [Concomitant]
     Indication: PROPHYLAXIS OF NAUSEA AND VOMITING
     Dosage: 10 MG, OTHER
     Route: 042
     Dates: start: 20061026, end: 20061026
  6. MONO-TILDIEM /FRA/ [Concomitant]
     Indication: CORONARY ARTERY INSUFFICIENCY
     Dosage: 300 MG, DAILY (1/D)
     Route: 065
  7. CORVASAL [Concomitant]
     Indication: CORONARY ARTERY INSUFFICIENCY
     Dosage: 2 G, 2/D
     Route: 065
  8. PRAVASTATIN [Concomitant]
     Dosage: 1 D/F, DAILY (1/D)
     Route: 065
  9. PLAVIX [Concomitant]
     Indication: CORONARY ARTERY INSUFFICIENCY
     Dosage: 1 D/F, DAILY (1/D)
     Route: 065

REACTIONS (4)
  - DERMATITIS ALLERGIC [None]
  - INTERSTITIAL LUNG DISEASE [None]
  - PLEURAL EFFUSION [None]
  - PYREXIA [None]
